FAERS Safety Report 11151166 (Version 2)
Quarter: 2015Q3

REPORT INFORMATION
  Report Type: Report from Study
  Country: US (occurrence: None)
  Receive Date: 20150529
  Receipt Date: 20150817
  Transmission Date: 20151125
  Serious: Yes (Other)
  Sender: FDA-Public Use
  Company Number: US-2015CRT000357

PATIENT
  Age: 50 Year
  Sex: Female
  Weight: 117 kg

DRUGS (15)
  1. LORAZEPAM. [Concomitant]
     Active Substance: LORAZEPAM
  2. FLUTICASONE W/SALMETEROL (FLUTICASONE, SALMETEROL) INHALATION POWDER, 250/50UG [Concomitant]
     Active Substance: FLUTICASONE PROPIONATE\SALMETEROL XINAFOATE
  3. OMEPRAZOLE. [Concomitant]
     Active Substance: OMEPRAZOLE
  4. KORLYM [Suspect]
     Active Substance: MIFEPRISTONE
     Indication: CUSHING^S SYNDROME
     Route: 048
     Dates: end: 201502
  5. ALBUTEROL /00139501/ (SALBUTAMOL) [Concomitant]
     Active Substance: ALBUTEROL
  6. ALEVE [Concomitant]
     Active Substance: NAPROXEN SODIUM
  7. KORLYM [Suspect]
     Active Substance: MIFEPRISTONE
     Indication: PITUITARY-DEPENDENT CUSHING^S SYNDROME
     Route: 048
     Dates: end: 201502
  8. AVAPRO [Concomitant]
     Active Substance: IRBESARTAN
  9. LAMICTAL [Concomitant]
     Active Substance: LAMOTRIGINE
  10. NORCO (HYDROCODONE BITARTRATE, PARACETAMOL) [Concomitant]
  11. IBUPROFEN. [Concomitant]
     Active Substance: IBUPROFEN
  12. PROPRANOLOL [Concomitant]
     Active Substance: PROPRANOLOL\PROPRANOLOL HYDROCHLORIDE
  13. TEMAZEPAM. [Concomitant]
     Active Substance: TEMAZEPAM
  14. SINGULAIR (MONTELUKAST SODIUM) [Concomitant]
  15. SOMA [Concomitant]
     Active Substance: CARISOPRODOL

REACTIONS (14)
  - Blood potassium decreased [None]
  - Blood pressure increased [None]
  - Pain in extremity [None]
  - Peripheral swelling [None]
  - Arthralgia [None]
  - Constipation [None]
  - Pain [None]
  - Bone pain [None]
  - Epistaxis [None]
  - Nausea [None]
  - Nasopharyngitis [None]
  - Sinus disorder [None]
  - Myalgia [None]
  - Vomiting [None]

NARRATIVE: CASE EVENT DATE: 2014
